FAERS Safety Report 13278290 (Version 3)
Quarter: 2017Q2

REPORT INFORMATION
  Report Type: Spontaneous
  Country: US (occurrence: US)
  Receive Date: 20170228
  Receipt Date: 20170516
  Transmission Date: 20170830
  Serious: Yes (Other)
  Sender: FDA-Public Use
  Company Number: US-PFIZER INC-2017081478

PATIENT
  Age: 80 Year
  Sex: Female
  Weight: 83.9 kg

DRUGS (11)
  1. POTASSIUM [Concomitant]
     Active Substance: POTASSIUM
     Indication: SUPPLEMENTATION THERAPY
     Dosage: 10 MEQ, 2X/DAY
  2. LYRICA [Suspect]
     Active Substance: PREGABALIN
     Dosage: 50 MG, ALTERNATE DAY (EVERY OTHER DAY)
     Route: 048
     Dates: start: 201608, end: 20170404
  3. PRILOSEC [Concomitant]
     Active Substance: OMEPRAZOLE MAGNESIUM
     Dosage: 40 MG, DAILY
  4. ATENOLOL. [Concomitant]
     Active Substance: ATENOLOL
     Indication: BLOOD PRESSURE ABNORMAL
     Dosage: 50 MG, 1X/DAY
  5. VITAMIN D3 [Concomitant]
     Active Substance: CHOLECALCIFEROL
     Indication: VITAMIN D DECREASED
     Dosage: 2000 IU, 1X/DAY (ONCE DAILY)
  6. LASIX [Concomitant]
     Active Substance: FUROSEMIDE
     Dosage: 50 MG, 1X/DAY
  7. LYRICA [Suspect]
     Active Substance: PREGABALIN
     Indication: FIBROMYALGIA
     Dosage: 75 MG, 1X/DAY (AT NIGHT)
     Route: 048
     Dates: start: 2016
  8. GAS-X [Concomitant]
     Active Substance: DIMETHICONE
     Indication: GASTRIC DISORDER
     Dosage: UNK, AS NEEDED
  9. PRILOSEC [Concomitant]
     Active Substance: OMEPRAZOLE MAGNESIUM
     Indication: GASTRIC DISORDER
     Dosage: 20 MG, 1X/DAY
  10. VITAMIN D3 [Concomitant]
     Active Substance: CHOLECALCIFEROL
     Indication: SUPPLEMENTATION THERAPY
  11. ASPIRIN. [Concomitant]
     Active Substance: ASPIRIN
     Dosage: 81 MG, 1X/DAY (ONCE DAILY)

REACTIONS (12)
  - Weight increased [Not Recovered/Not Resolved]
  - Energy increased [Unknown]
  - Neck pain [Recovered/Resolved]
  - Product use issue [Unknown]
  - Viral upper respiratory tract infection [Unknown]
  - Therapeutic response unexpected [Unknown]
  - Nasal congestion [Recovered/Resolved]
  - Gastric disorder [Recovered/Resolved]
  - Visual impairment [Recovered/Resolved]
  - Swelling [Not Recovered/Not Resolved]
  - Pre-existing condition improved [Unknown]
  - Urinary tract infection [Recovered/Resolved]

NARRATIVE: CASE EVENT DATE: 201608
